FAERS Safety Report 7106274-0 (Version None)
Quarter: 2010Q4

REPORT INFORMATION
  Report Type: 
  Country: None (occurrence: None)
  Receive Date: 20101116
  Receipt Date: 20101110
  Transmission Date: 20110411
  Serious: Yes (Other)
  Sender: FDA-Public Use
  Company Number: JP-PFIZER INC-2010144202

PATIENT
  Age: 61 Year
  Sex: Female

DRUGS (2)
  1. METHYLPREDNISOLONE SODIUM SUCCINATE [Suspect]
     Indication: EXTRAOCULAR MUSCLE DISORDER
     Dosage: UNK
     Route: 041
  2. PREDNISOLONE [Concomitant]
     Dosage: UNK
     Route: 048

REACTIONS (6)
  - GASTRITIS EROSIVE [None]
  - GLUCOSE TOLERANCE IMPAIRED [None]
  - HEPATIC FUNCTION ABNORMAL [None]
  - HEPATIC STEATOSIS [None]
  - LUMBAR VERTEBRAL FRACTURE [None]
  - OSTEOPOROSIS [None]
